FAERS Safety Report 15930639 (Version 1)
Quarter: 2019Q1

REPORT INFORMATION
  Report Type: Spontaneous
  Country: JP (occurrence: JP)
  Receive Date: 20190207
  Receipt Date: 20190207
  Transmission Date: 20190417
  Serious: Yes (Other)
  Sender: FDA-Public Use
  Company Number: JP-INGENUS PHARMACEUTICALS NJ, LLC-ING201901-000072

PATIENT
  Age: 75 Year
  Sex: Female
  Weight: 37 kg

DRUGS (10)
  1. CLOPIDOGREL [Suspect]
     Active Substance: CLOPIDOGREL BISULFATE
     Indication: ANTIPLATELET THERAPY
  2. PROPOFOL. [Concomitant]
     Active Substance: PROPOFOL
     Dosage: 3.0 MICROGRAM/ML
  3. REMIFENTANIL [Concomitant]
     Active Substance: REMIFENTANIL
     Dosage: 0.1 MICROGRAM/KG/MIN
  4. ARGATROBAN. [Concomitant]
     Active Substance: ARGATROBAN
  5. CARISOPRODOL, ASPIRIN AND CODEINE PHOSPHATE [Suspect]
     Active Substance: ASPIRIN\CARISOPRODOL\CODEINE PHOSPHATE
     Indication: ANTIPLATELET THERAPY
  6. FENTANYL. [Concomitant]
     Active Substance: FENTANYL
     Dosage: 50 MICROGRAM
  7. PROPOFOL. [Concomitant]
     Active Substance: PROPOFOL
     Dosage: 0.05 MICROG/KG/MIN
  8. HEPARIN [Concomitant]
     Active Substance: HEPARIN SODIUM
     Dosage: 4000 UNITS
     Route: 042
  9. NICARDIPINE [Concomitant]
     Active Substance: NICARDIPINE
  10. ROCURONIUM [Concomitant]
     Active Substance: ROCURONIUM BROMIDE
     Dosage: 30 MG

REACTIONS (4)
  - Blood pressure decreased [Recovered/Resolved]
  - Haematemesis [Recovered/Resolved]
  - Haematoma [Recovered/Resolved]
  - Haemoglobin decreased [Recovered/Resolved]
